FAERS Safety Report 7790755-0 (Version None)
Quarter: 2011Q3

REPORT INFORMATION
  Report Type: 
  Country: None (occurrence: None)
  Receive Date: 20110930
  Receipt Date: 20110919
  Transmission Date: 20111222
  Serious: Yes (Hospitalization, Other)
  Sender: FDA-Public Use
  Company Number: RO-ELI_LILLY_AND_COMPANY-RO201109005777

PATIENT
  Age: 28 Year
  Sex: Male

DRUGS (3)
  1. OLANZAPINE [Suspect]
     Indication: BIPOLAR DISORDER
     Dosage: 10 MG, QD
  2. CLONAZEPAM [Concomitant]
     Dosage: 2 MG, QD
  3. VALPROIC ACID [Concomitant]
     Dosage: 500 MG, QD

REACTIONS (10)
  - PYREXIA [None]
  - DYSPNOEA [None]
  - CYANOSIS [None]
  - GALLOP RHYTHM PRESENT [None]
  - ANGINA PECTORIS [None]
  - LUNG CONSOLIDATION [None]
  - PLEURAL EFFUSION [None]
  - HAEMOPTYSIS [None]
  - PULMONARY EMBOLISM [None]
  - JUGULAR VEIN DISTENSION [None]
